FAERS Safety Report 8198358-3 (Version None)
Quarter: 2012Q1

REPORT INFORMATION
  Report Type: 
  Country: None (occurrence: None)
  Receive Date: 20120309
  Receipt Date: 20120305
  Transmission Date: 20120608
  Serious: Yes (Death, Hospitalization, Other)
  Sender: FDA-Public Use
  Company Number: PHHY2011GT67474

PATIENT
  Sex: Male

DRUGS (2)
  1. GLEEVEC [Suspect]
     Indication: CHRONIC MYELOID LEUKAEMIA
     Dosage: 400 MG, UNK
     Route: 048
     Dates: start: 20110720
  2. GLEEVEC [Suspect]
     Dosage: CHANGE OF DOSAGE OCCURRED
     Route: 048

REACTIONS (2)
  - BLAST CRISIS IN MYELOGENOUS LEUKAEMIA [None]
  - PNEUMONIA [None]
